FAERS Safety Report 6479745-8 (Version None)
Quarter: 2009Q4

REPORT INFORMATION
  Report Type: 
  Country: None (occurrence: None)
  Receive Date: 20091208
  Receipt Date: 20091125
  Transmission Date: 20100525
  Serious: Yes (Other)
  Sender: FDA-Public Use
  Company Number: PHHY2009BR52249

PATIENT
  Sex: Female
  Weight: 76 kg

DRUGS (4)
  1. DIOVAN HCT [Suspect]
     Indication: HYPERTENSION
     Dosage: 1 TABLET PER DAY
     Route: 048
  2. DIOVAN HCT [Suspect]
     Dosage: 0.5 TABLET PER DAY
     Route: 048
  3. ATENOLOL [Concomitant]
     Indication: HYPERTENSION
     Dosage: 1 TABLET PER DAY
     Route: 048
  4. FLUOXETINE [Concomitant]
     Indication: DEPRESSION
     Dosage: 1 TABLET PER DAY
     Route: 048

REACTIONS (6)
  - BLOOD PRESSURE DECREASED [None]
  - FEELING ABNORMAL [None]
  - LOSS OF CONSCIOUSNESS [None]
  - SYNCOPE [None]
  - VISUAL IMPAIRMENT [None]
  - WRONG TECHNIQUE IN DRUG USAGE PROCESS [None]
